FAERS Safety Report 10211276 (Version 1)
Quarter: 2014Q2

REPORT INFORMATION
  Report Type: Report from Study
  Country: MX (occurrence: MX)
  Receive Date: 20140602
  Receipt Date: 20140602
  Transmission Date: 20141212
  Serious: Yes (Other)
  Sender: FDA-Public Use
  Company Number: PHHY2014MX067302

PATIENT
  Age: 59 Year
  Sex: Female

DRUGS (4)
  1. ACLASTA [Suspect]
     Indication: OSTEOPOROSIS
     Dosage: 5 MG/100ML ANNUALLY
     Route: 042
     Dates: start: 201307
  2. LYRICA [Concomitant]
     Indication: MUSCLE OPERATION
     Dosage: 1 UKN, DAILY
     Dates: start: 2011
  3. LEXAPRO [Concomitant]
     Indication: DEPRESSION
     Dosage: 1 UKN, RARELY
     Dates: start: 2013
  4. EUTIROX [Concomitant]
     Indication: THYROID DISORDER
     Dosage: 1 UKN, DAILY
     Dates: start: 2011

REACTIONS (6)
  - Upper limb fracture [Recovering/Resolving]
  - Pain [Recovering/Resolving]
  - Road traffic accident [Recovering/Resolving]
  - Screaming [Recovering/Resolving]
  - Skin disorder [Recovering/Resolving]
  - Impaired healing [Recovering/Resolving]
